FAERS Safety Report 11823419 (Version 2)
Quarter: 2015Q4

REPORT INFORMATION
  Report Type: Spontaneous
  Country: DK (occurrence: DK)
  Receive Date: 20151210
  Receipt Date: 20151215
  Transmission Date: 20160305
  Serious: Yes (Life-Threatening, Hospitalization, Other)
  Sender: FDA-Public Use
  Company Number: DK-IGI LABORATORIES, INC.-1045312

PATIENT
  Age: 63 Year
  Sex: Male

DRUGS (1)
  1. ZINACEF [Suspect]
     Active Substance: CEFUROXIME SODIUM
     Indication: ANTIBIOTIC THERAPY
     Route: 042
     Dates: start: 20140228, end: 20140228

REACTIONS (13)
  - Blood pressure decreased [Recovered/Resolved]
  - Procedural complication [Recovered/Resolved]
  - Loss of consciousness [Recovered/Resolved]
  - Aphasia [Recovered/Resolved]
  - Nervous system disorder [Not Recovered/Not Resolved]
  - Dyspnoea [Recovered/Resolved]
  - Brain hypoxia [Recovered/Resolved with Sequelae]
  - Anaphylactic reaction [Recovered/Resolved]
  - Paralysis [Recovering/Resolving]
  - Vomiting [Recovered/Resolved]
  - Cardiac arrest [Recovered/Resolved]
  - Hypersensitivity [Unknown]
  - Erythema [Recovered/Resolved]

NARRATIVE: CASE EVENT DATE: 20140228
